APPROVED DRUG PRODUCT: METOPROLOL SUCCINATE
Active Ingredient: METOPROLOL SUCCINATE
Strength: EQ 50MG TARTRATE
Dosage Form/Route: TABLET, EXTENDED RELEASE;ORAL
Application: A090615 | Product #002 | TE Code: AB
Applicant: WOCKHARDT BIO AG
Approved: Jul 22, 2010 | RLD: No | RS: No | Type: RX